FAERS Safety Report 4647251-9 (Version None)
Quarter: 2005Q2

REPORT INFORMATION
  Report Type: 
  Country: None (occurrence: None)
  Receive Date: 20050428
  Receipt Date: 20050307
  Transmission Date: 20051028
  Serious: Yes (Hospitalization, Other)
  Sender: FDA-Public Use
  Company Number: JP-BRISTOL-MYERS SQUIBB COMPANY-12889218

PATIENT
  Age: 74 Year
  Sex: Female

DRUGS (7)
  1. TAXOL [Suspect]
     Indication: UTERINE CANCER
     Route: 041
     Dates: start: 20050111, end: 20050111
  2. PARAPLATIN [Suspect]
     Indication: UTERINE CANCER
     Route: 041
     Dates: start: 20050216, end: 20050216
  3. KYTRIL [Concomitant]
     Route: 041
     Dates: start: 20050111, end: 20050216
  4. TAGAMET [Concomitant]
     Route: 042
     Dates: start: 20050111, end: 20050216
  5. RESTAMIN [Concomitant]
     Route: 048
     Dates: start: 20050111, end: 20050216
  6. DECADRON [Concomitant]
     Route: 042
     Dates: start: 20050216, end: 20050216
  7. DECADRON [Concomitant]
     Route: 042
     Dates: start: 20050110, end: 20050111

REACTIONS (2)
  - ENTEROCOLITIS [None]
  - LIVER FUNCTION TEST ABNORMAL [None]
